FAERS Safety Report 22268242 (Version 1)
Quarter: 2023Q2

REPORT INFORMATION
  Report Type: Spontaneous
  Country: US (occurrence: US)
  Receive Date: 20230430
  Receipt Date: 20230430
  Transmission Date: 20230721
  Serious: No
  Sender: FDA-Public Use
  Company Number: US-SA-SAC20230424000408

PATIENT
  Sex: Female

DRUGS (3)
  1. DUPIXENT [Suspect]
     Active Substance: DUPILUMAB
     Indication: Dermatitis atopic
     Dosage: 300 MG, QOW
     Route: 058
     Dates: start: 20220929
  2. IRON [Concomitant]
     Active Substance: IRON
     Dosage: UNK
  3. HYDROXYPROGESTERONE CAPROATE [Concomitant]
     Active Substance: HYDROXYPROGESTERONE CAPROATE
     Dosage: UNK

REACTIONS (3)
  - Sleep disorder [Recovering/Resolving]
  - Pruritus [Recovering/Resolving]
  - Dermatitis atopic [Recovered/Resolved]
